FAERS Safety Report 17793680 (Version 11)
Quarter: 2022Q3

REPORT INFORMATION
  Report Type: Spontaneous
  Country: US (occurrence: US)
  Receive Date: 20200515
  Receipt Date: 20220915
  Transmission Date: 20221027
  Serious: Yes (Hospitalization, Other)
  Sender: FDA-Public Use
  Company Number: US-CATALYST PHARMACEUTICALS, INC-2020CAT00184

PATIENT
  Sex: Female
  Weight: 49.433 kg

DRUGS (53)
  1. FIRDAPSE [Suspect]
     Active Substance: AMIFAMPRIDINE PHOSPHATE
     Indication: Myasthenic syndrome
     Dosage: 20 MG, 4X/DAY
     Route: 048
     Dates: start: 2020
  2. FIRDAPSE [Suspect]
     Active Substance: AMIFAMPRIDINE PHOSPHATE
     Dosage: 10 MG, 3X/DAY
     Route: 048
     Dates: start: 20200422, end: 20200513
  3. FIRDAPSE [Suspect]
     Active Substance: AMIFAMPRIDINE PHOSPHATE
     Dosage: 10 MG, 3X/DAY
     Route: 048
     Dates: start: 2020, end: 2020
  4. FIRDAPSE [Suspect]
     Active Substance: AMIFAMPRIDINE PHOSPHATE
     Dosage: 15 MG, 1X/DAY AT NIGHT
     Route: 048
     Dates: start: 2020, end: 2020
  5. FIRDAPSE [Suspect]
     Active Substance: AMIFAMPRIDINE PHOSPHATE
     Dosage: 15 MG, 2X/DAY
     Route: 048
     Dates: start: 2020, end: 2020
  6. FIRDAPSE [Suspect]
     Active Substance: AMIFAMPRIDINE PHOSPHATE
     Dosage: 20 MG, 1X/DAY AT BEDTIME
     Route: 048
     Dates: start: 2020, end: 2020
  7. FIRDAPSE [Suspect]
     Active Substance: AMIFAMPRIDINE PHOSPHATE
     Dosage: 15 MG, 3X/DAY
     Dates: start: 2020, end: 2020
  8. FIRDAPSE [Suspect]
     Active Substance: AMIFAMPRIDINE PHOSPHATE
     Dosage: 20 MG, 3X/DAY
     Route: 048
     Dates: start: 202008, end: 2020
  9. FIRDAPSE [Suspect]
     Active Substance: AMIFAMPRIDINE PHOSPHATE
     Dosage: 10 MG, 4X/DAY
     Route: 048
     Dates: start: 2020, end: 20200922
  10. FIRDAPSE [Suspect]
     Active Substance: AMIFAMPRIDINE PHOSPHATE
     Dosage: 15 MG, 4X/DAY
     Route: 048
     Dates: start: 20200923, end: 20201027
  11. FIRDAPSE [Suspect]
     Active Substance: AMIFAMPRIDINE PHOSPHATE
     Dosage: 20 MG, 4X/DAY
     Route: 048
     Dates: start: 20201028, end: 20201106
  12. FIRDAPSE [Suspect]
     Active Substance: AMIFAMPRIDINE PHOSPHATE
     Dosage: 15 MG, 4X/DAY
     Route: 048
     Dates: start: 20201107, end: 20201214
  13. FIRDAPSE [Suspect]
     Active Substance: AMIFAMPRIDINE PHOSPHATE
     Dosage: 20 MG, 4X/DAY (6AM, 11AM, 3:30PM, 8PM)
     Route: 048
     Dates: start: 20201215
  14. FIRDAPSE [Suspect]
     Active Substance: AMIFAMPRIDINE PHOSPHATE
     Dosage: 20 MG, 4X/DAY
     Route: 048
  15. UNSPECIFIED INGREDIENT [Suspect]
     Active Substance: UNSPECIFIED INGREDIENT
     Dosage: UNK
     Dates: start: 20200429
  16. PEPTO-BISMOL [Suspect]
     Active Substance: BISMUTH SUBSALICYLATE
     Dosage: UNK
     Dates: start: 202004
  17. UNSPECIFIED INGREDIENT [Suspect]
     Active Substance: UNSPECIFIED INGREDIENT
     Dosage: UNK
     Dates: end: 2020
  18. PYRIDOSTIGMINE [Concomitant]
     Active Substance: PYRIDOSTIGMINE
     Dosage: 60 MG, 3X/DAY
     Route: 048
  19. PYRIDOSTIGMINE [Concomitant]
     Active Substance: PYRIDOSTIGMINE
     Dosage: 50 MG, 3X/DAY
  20. BREO ELLIPTA [Concomitant]
     Active Substance: FLUTICASONE FUROATE\VILANTEROL TRIFENATATE
     Dosage: 1 DOSAGE UNITS, 1X/DAY
  21. BUSPIRONE [Concomitant]
     Active Substance: BUSPIRONE HYDROCHLORIDE
     Dosage: 15 MG, 2X/DAY
     Route: 048
  22. BUSPIRONE [Concomitant]
     Active Substance: BUSPIRONE HYDROCHLORIDE
     Dosage: 5 MG, 1X/DAY
  23. BUSPIRONE [Concomitant]
     Active Substance: BUSPIRONE HYDROCHLORIDE
     Dosage: 7.5 MG, 2X/DAY
  24. DOXYCYCLINE HYCLATE [Concomitant]
     Active Substance: DOXYCYCLINE HYCLATE
     Dosage: 100 MG, 2X/DAY
     Route: 048
  25. FLUTICASONE [Concomitant]
     Active Substance: FLUTICASONE
     Dosage: 1 DOSAGE UNITS, 1X/DAY
  26. MELATONIN [Concomitant]
     Active Substance: MELATONIN
     Dosage: 5 MG, 1X/DAY AT BEDTIME
     Route: 048
  27. METOPROLOL TARTRATE [Concomitant]
     Active Substance: METOPROLOL TARTRATE
     Dosage: 50 MG, 2X/DAY
     Route: 048
  28. MONTELUKAST [Concomitant]
     Active Substance: MONTELUKAST SODIUM
     Dosage: 10 MG, 1X/DAY EVERY EVENING
     Route: 048
  29. OMEPRAZOLE [Concomitant]
     Active Substance: OMEPRAZOLE
     Dosage: 20 MG, 2X/DAY
     Route: 048
  30. PROAIR HFA [Concomitant]
     Active Substance: ALBUTEROL SULFATE
     Dosage: 2 DOSAGE UNITS, UP TO 2X/DAY
  31. SODIUM CHLORIDE [Concomitant]
     Active Substance: SODIUM CHLORIDE
     Dosage: 1000 MG, 2X/DAY
     Route: 048
  32. TEMAZEPAM [Concomitant]
     Active Substance: TEMAZEPAM
     Dosage: 15 MG, AS NEEDED AT BEDTIME
     Route: 048
  33. ZOFRAN [Concomitant]
     Active Substance: ONDANSETRON HYDROCHLORIDE
     Dosage: 4 MG, UP TO 2X/DAY
     Route: 048
  34. ZOFRAN [Concomitant]
     Active Substance: ONDANSETRON HYDROCHLORIDE
     Dosage: UNK, AS NEEDED
  35. PREDNISONE [Concomitant]
     Active Substance: PREDNISONE
     Dosage: 10 MG, AS NEEDED
  36. TEMAZEPAM [Concomitant]
     Active Substance: TEMAZEPAM
     Dosage: 7.5 MG, AS NEEDED
  37. AMLODIPINE [Concomitant]
     Active Substance: AMLODIPINE BESYLATE
     Dosage: 5 MG, 1X/DAY
  38. MESTINON [Concomitant]
     Active Substance: PYRIDOSTIGMINE BROMIDE
     Dosage: 60 MG, 3X/DAY
  39. DIPHENOXYLATE [Concomitant]
     Active Substance: DIPHENOXYLATE
     Dosage: UNK, AS NEEDED FOR DIARRHEA
  40. ALBUTEROL [Concomitant]
     Active Substance: ALBUTEROL
     Dosage: 2.5 MG, AS NEEDED FOR SHORTNESS OF BREATH
  41. BENADRYL [Concomitant]
     Active Substance: DIPHENHYDRAMINE HYDROCHLORIDE
     Dosage: 25 MG, AS NEEDED DURING INFUSIONS
  42. COLESTIPOL [Concomitant]
     Active Substance: COLESTIPOL
     Dosage: 1 G, 2X/DAY
  43. VITAMIN B-12  ER [Concomitant]
     Dosage: 1000 ?G, 1X/DAY
  44. EPIPEN [Concomitant]
     Active Substance: EPINEPHRINE
     Dosage: UNK, AS NEEDED FOR ANAPHYLAXIS
  45. FERROUS SULFATE [Concomitant]
     Active Substance: FERROUS SULFATE
     Dosage: 325 MG, EVERY 48 HOURS
  46. GAMMAGARD [Concomitant]
     Active Substance: HUMAN IMMUNOGLOBULIN G
     Dosage: 5 G INFUSED EVERY 4 WEEKS
  47. HEPARIN SODIUM [Concomitant]
     Active Substance: HEPARIN SODIUM
     Dosage: UNK, AS NEEDED DURING INFUSTIONS
  48. LEVALBUTEROL [Concomitant]
     Active Substance: LEVALBUTEROL
     Dosage: 0.63 MG, 3X/DAY
  49. LIDOCAINE TOPICAL CREAM [Concomitant]
     Dosage: UNK, AS NEEDED DURING INFUSION
  50. MUCINEX [Concomitant]
     Active Substance: GUAIFENESIN
     Dosage: 600 MG, AS NEEDED FOR CONGESTION
  51. SOLU- MEDROL [Concomitant]
     Dosage: UNK, AS NEEDED FOR INFUSRION
  52. SUDAFED [Concomitant]
     Active Substance: PSEUDOEPHEDRINE HYDROCHLORIDE
     Dosage: 30 MG, AS NEEDED FOR NASAL CONGESTION
  53. VITAMIN C [Concomitant]
     Active Substance: ASCORBIC ACID
     Dosage: 500 MG, EVERY 48 HOURS

REACTIONS (34)
  - Pneumonia staphylococcal [Recovered/Resolved]
  - Pneumonia pseudomonal [Recovered/Resolved]
  - Respiratory failure [Recovering/Resolving]
  - Pneumonia [Recovering/Resolving]
  - Colitis [Not Recovered/Not Resolved]
  - Sinus tachycardia [Recovered/Resolved]
  - Hypokalaemia [Recovered/Resolved]
  - Hypomagnesaemia [Recovered/Resolved]
  - Hyponatraemia [Recovered/Resolved]
  - Hypophosphataemia [Recovered/Resolved]
  - Decreased appetite [Not Recovered/Not Resolved]
  - Weight decreased [Not Recovered/Not Resolved]
  - Abdominal discomfort [Recovering/Resolving]
  - Tremor [Not Recovered/Not Resolved]
  - Illness [Unknown]
  - Retching [Not Recovered/Not Resolved]
  - Vomiting [Unknown]
  - Fatigue [Not Recovered/Not Resolved]
  - Dysphonia [Not Recovered/Not Resolved]
  - Gait disturbance [Unknown]
  - Joint swelling [Recovering/Resolving]
  - Feeling cold [Not Recovered/Not Resolved]
  - Joint stiffness [Unknown]
  - Intentional product use issue [Unknown]
  - Sedation [Not Recovered/Not Resolved]
  - Heart rate decreased [Recovered/Resolved]
  - Oxygen saturation decreased [Recovered/Resolved]
  - Blood iron decreased [Unknown]
  - Asthenia [Recovered/Resolved]
  - Diarrhoea [Recovered/Resolved]
  - Abdominal pain upper [Unknown]
  - Nausea [Not Recovered/Not Resolved]
  - Hypoaesthesia oral [Recovering/Resolving]
  - Dizziness [Recovered/Resolved]

NARRATIVE: CASE EVENT DATE: 20200101
